FAERS Safety Report 13410200 (Version 1)
Quarter: 2017Q2

REPORT INFORMATION
  Report Type: Report from Study
  Country: US (occurrence: US)
  Receive Date: 20170406
  Receipt Date: 20170406
  Transmission Date: 20170830
  Serious: No
  Sender: FDA-Public Use
  Company Number: US-AMGEN-USASL2017050914

PATIENT
  Age: 52 Year
  Sex: Female

DRUGS (1)
  1. ENBREL [Suspect]
     Active Substance: ETANERCEPT
     Indication: RHEUMATOID ARTHRITIS
     Dosage: 50 MG, QWK
     Route: 065
     Dates: start: 20170217

REACTIONS (12)
  - Nausea [Recovered/Resolved]
  - Chest discomfort [Unknown]
  - Fatigue [Not Recovered/Not Resolved]
  - Depression [Unknown]
  - Head discomfort [Unknown]
  - Ocular discomfort [Unknown]
  - Lethargy [Unknown]
  - Anxiety [Unknown]
  - Cough [Unknown]
  - Eye pain [Unknown]
  - Injection site reaction [Unknown]
  - Crying [Unknown]

NARRATIVE: CASE EVENT DATE: 2017
